FAERS Safety Report 6502726-2 (Version None)
Quarter: 2009Q4

REPORT INFORMATION
  Report Type: 
  Country: None (occurrence: None)
  Receive Date: 20091217
  Receipt Date: 20091208
  Transmission Date: 20100525
  Serious: Yes (Other)
  Sender: FDA-Public Use
  Company Number: US-JNJFOC-20091203253

PATIENT
  Sex: Female
  Weight: 70.31 kg

DRUGS (13)
  1. DURAGESIC-100 [Suspect]
     Indication: BACK PAIN
     Dosage: 100 AND 50 MCG PATCH
     Route: 062
     Dates: start: 20030101, end: 20091101
  2. CYMBALTA [Suspect]
     Indication: NEUROPATHY PERIPHERAL
     Route: 048
     Dates: start: 20070101
  3. POTASSIUM CHLORIDE [Concomitant]
     Indication: ELECTROLYTE SUBSTITUTION THERAPY
     Route: 065
  4. LASIX [Concomitant]
     Indication: FLUID RETENTION
     Route: 065
  5. WELLBUTRIN [Concomitant]
     Indication: EX-TOBACCO USER
     Route: 065
  6. XANAX [Concomitant]
     Indication: EX-TOBACCO USER
     Route: 065
  7. NASACORT [Concomitant]
     Indication: CHRONIC SINUSITIS
     Dosage: SQUIRTS A DAY
     Route: 045
  8. DEMEROL [Concomitant]
     Indication: PAIN
     Route: 048
     Dates: start: 20030101
  9. PROMETHAZINE [Concomitant]
     Indication: NAUSEA
     Route: 048
  10. VALIUM [Concomitant]
     Indication: MUSCLE SPASMS
     Route: 065
  11. ROBAXIN [Concomitant]
     Indication: MUSCLE SPASMS
     Route: 065
  12. OMEPRAZOLE [Concomitant]
     Indication: GASTROOESOPHAGEAL REFLUX DISEASE
     Route: 065
  13. ZANTAC [Concomitant]
     Indication: GASTROOESOPHAGEAL REFLUX DISEASE
     Route: 065

REACTIONS (6)
  - BREAKTHROUGH PAIN [None]
  - INAPPROPRIATE SCHEDULE OF DRUG ADMINISTRATION [None]
  - INSOMNIA [None]
  - NEUROPATHY PERIPHERAL [None]
  - RESTLESS LEGS SYNDROME [None]
  - SOMNOLENCE [None]
